FAERS Safety Report 7455988-1 (Version None)
Quarter: 2011Q2

REPORT INFORMATION
  Report Type: 
  Country: None (occurrence: None)
  Receive Date: 20110503
  Receipt Date: 20110422
  Transmission Date: 20111010
  Serious: Yes (Hospitalization)
  Sender: FDA-Public Use
  Company Number: JP-MERCK-1012USA02397

PATIENT
  Age: 84 Year
  Sex: Male
  Weight: 41 kg

DRUGS (14)
  1. PEPCID [Suspect]
     Indication: GASTRIC OPERATION
     Route: 048
     Dates: start: 20100201, end: 20101108
  2. EPRAZINONE [Concomitant]
     Indication: ASTHMA
     Route: 065
     Dates: start: 19900101, end: 20101112
  3. MOSAPRIDE [Concomitant]
     Indication: GASTRIC CANCER
     Route: 065
     Dates: start: 20100201, end: 20101112
  4. THEOPHYLLINE [Suspect]
     Indication: ASTHMA
     Route: 048
     Dates: start: 19900101, end: 20101108
  5. CARBOCYSTEINE [Concomitant]
     Indication: ASTHMA
     Route: 065
     Dates: start: 19900101, end: 20101112
  6. EPRAZINONE [Concomitant]
     Indication: EMPHYSEMA
     Route: 065
     Dates: start: 19900101, end: 20101112
  7. FERROUS FUMARATE [Concomitant]
     Indication: IRON DEFICIENCY ANAEMIA
     Route: 065
     Dates: start: 20101102, end: 20101108
  8. GARENOXACIN MESYLATE [Concomitant]
     Indication: ASTHMA
     Route: 065
     Dates: start: 20101031, end: 20101104
  9. CARBOCYSTEINE [Concomitant]
     Indication: EMPHYSEMA
     Route: 065
     Dates: start: 19900101, end: 20101112
  10. TIOTROPIUM BROMIDE [Concomitant]
     Indication: ASTHMA
     Route: 065
     Dates: start: 19900101
  11. PRANLUKAST [Concomitant]
     Indication: ASTHMA
     Route: 065
     Dates: start: 19900101, end: 20101112
  12. IBUDILAST [Concomitant]
     Indication: ASTHMA
     Route: 065
     Dates: start: 19900101, end: 20101112
  13. PEPCID [Suspect]
     Indication: GASTRIC CANCER
     Route: 048
     Dates: start: 20100201, end: 20101108
  14. NAFTOPIDIL [Concomitant]
     Indication: BENIGN PROSTATIC HYPERPLASIA
     Route: 065
     Dates: start: 19991201, end: 20101112

REACTIONS (1)
  - SIDEROBLASTIC ANAEMIA [None]
